FAERS Safety Report 8988219 (Version 1)
Quarter: 2012Q4

REPORT INFORMATION
  Report Type: 
  Country: GB (occurrence: GB)
  Receive Date: 20121227
  Receipt Date: 20121227
  Transmission Date: 20130627
  Serious: Yes (Hospitalization)
  Sender: FDA-Public Use
  Company Number: GB-WATSON-2012-22880

PATIENT
  Sex: Female

DRUGS (15)
  1. MIRTAZAPINE (UNKNOWN) [Suspect]
     Indication: DEPRESSION
     Dosage: Initial dose 45mg, then reduced to 30mg
     Route: 048
     Dates: start: 20121106
  2. MORPHINE [Concomitant]
     Indication: PRODUCT USED FOR UNKNOWN INDICATION
     Dosage: UNK, unknown
     Route: 065
  3. SPIRONOLACTONE [Concomitant]
     Indication: PRODUCT USED FOR UNKNOWN INDICATION
     Dosage: UNK, unknown
     Route: 065
  4. SERETIDE [Concomitant]
     Indication: PRODUCT USED FOR UNKNOWN INDICATION
     Dosage: UNK, unknown
     Route: 065
  5. VENTOLIN                           /00139501/ [Concomitant]
     Indication: PRODUCT USED FOR UNKNOWN INDICATION
     Dosage: UNK, unknown
     Route: 065
  6. RANITIDINE [Concomitant]
     Indication: PRODUCT USED FOR UNKNOWN INDICATION
     Dosage: UNK, unknown
     Route: 065
  7. QUININE [Concomitant]
     Indication: PRODUCT USED FOR UNKNOWN INDICATION
     Dosage: UNK, unknown
     Route: 065
  8. PARACETAMOL [Concomitant]
     Indication: PRODUCT USED FOR UNKNOWN INDICATION
     Dosage: UNK, unknown
     Route: 065
  9. ISOSORBIDE MONONITRATE [Concomitant]
     Indication: PRODUCT USED FOR UNKNOWN INDICATION
     Dosage: UNK, unknown
     Route: 065
  10. GLYCERYL TRINITRATE [Concomitant]
     Indication: PRODUCT USED FOR UNKNOWN INDICATION
     Dosage: UNK, unknown
     Route: 065
  11. GABAPENTIN [Concomitant]
     Indication: PRODUCT USED FOR UNKNOWN INDICATION
     Dosage: UNK, unknown
     Route: 065
  12. ACETYLSALICYLIC ACID [Concomitant]
     Indication: PRODUCT USED FOR UNKNOWN INDICATION
     Dosage: UNK, unknown
     Route: 065
  13. ADCAL                              /00056901/ [Concomitant]
     Indication: PRODUCT USED FOR UNKNOWN INDICATION
     Dosage: UNK, unknown
     Route: 065
  14. EZETIMIBE [Concomitant]
     Indication: PRODUCT USED FOR UNKNOWN INDICATION
     Dosage: UNK, unknown
     Route: 065
  15. BISOPROLOL [Concomitant]
     Indication: PRODUCT USED FOR UNKNOWN INDICATION
     Dosage: UNK, unknown
     Route: 065

REACTIONS (1)
  - Restless legs syndrome [Not Recovered/Not Resolved]
